FAERS Safety Report 24015127 (Version 3)
Quarter: 2024Q3

REPORT INFORMATION
  Report Type: Spontaneous
  Country: US (occurrence: US)
  Receive Date: 20240626
  Receipt Date: 20240827
  Transmission Date: 20241017
  Serious: Yes (Other)
  Sender: BRISTOL MYERS SQUIBB
  Company Number: US-BRISTOL-MYERS SQUIBB COMPANY-2024-099549

PATIENT
  Age: 72 Year
  Sex: Female

DRUGS (3)
  1. LENALIDOMIDE [Suspect]
     Active Substance: LENALIDOMIDE
     Indication: Plasma cell myeloma
     Dosage: TAKE 1 CAPSULE BY MOUTH EVERY DAY FOR 21 DAYS FOLLOWED BY 7 DAYS OFF
     Route: 048
  2. LENALIDOMIDE [Suspect]
     Active Substance: LENALIDOMIDE
     Dosage: TAKE 1 CAPSULE  (10MG) BY MOUTH EVERY DAY FOR 14  DAYS,  FOLLOWED BY 7 DAYS OFF
     Route: 048
  3. LENALIDOMIDE [Suspect]
     Active Substance: LENALIDOMIDE
     Dosage: TAKE 1 CAPSULE  (10MG) BY MOUTH EVERY DAY FOR 14  DAYS,  FOLLOWED BY 7 DAYS OFF
     Route: 048

REACTIONS (6)
  - Pain [Recovering/Resolving]
  - Fatigue [Recovering/Resolving]
  - Neuropathy peripheral [Recovering/Resolving]
  - Pruritus [Recovered/Resolved]
  - Off label use [Unknown]
  - Muscle spasms [Not Recovered/Not Resolved]
